FAERS Safety Report 6583525-2 (Version None)
Quarter: 2010Q1

REPORT INFORMATION
  Report Type: 
  Country: None (occurrence: None)
  Receive Date: 20100216
  Receipt Date: 20100209
  Transmission Date: 20100710
  Serious: Yes (Hospitalization, Other)
  Sender: FDA-Public Use
  Company Number: PHHO2008US14871

PATIENT
  Sex: Female
  Weight: 49.2 kg

DRUGS (14)
  1. CO-DIOVAN [Suspect]
     Indication: HYPERTENSION
     Dosage: UNK
     Dates: end: 20081028
  2. CARBOPLATIN [Suspect]
  3. PACLITAXEL [Suspect]
  4. PARAPLATIN [Suspect]
  5. TAXOL [Suspect]
  6. NEULASTA [Concomitant]
  7. POTASSIUM [Concomitant]
  8. NORVASC [Concomitant]
  9. GLUCOSAMINE [Concomitant]
  10. VITAMIN D [Concomitant]
  11. DECADRON [Concomitant]
  12. VICODIN [Concomitant]
  13. ATIVAN [Concomitant]
  14. TEMAZEPAM [Concomitant]

REACTIONS (6)
  - DEHYDRATION [None]
  - DYSPHAGIA [None]
  - HYPONATRAEMIA [None]
  - MUCOSAL INFLAMMATION [None]
  - OROPHARYNGEAL PAIN [None]
  - URINARY TRACT INFECTION [None]
